FAERS Safety Report 20557180 (Version 5)
Quarter: 2023Q1

REPORT INFORMATION
  Report Type: Spontaneous
  Country: US (occurrence: US)
  Receive Date: 20220307
  Receipt Date: 20230314
  Transmission Date: 20230417
  Serious: Yes (Other)
  Sender: FDA-Public Use
  Company Number: US-PFIZER INC-202200308296

PATIENT
  Age: 67 Year
  Sex: Female

DRUGS (1)
  1. PREMARIN [Suspect]
     Active Substance: ESTROGENS, CONJUGATED
     Dosage: 0.5 G, 2X/WEEK, (ONCE A DAY MONDAY AND THURSDAY ONLY AT BED TIME)
     Route: 067
     Dates: start: 2019

REACTIONS (2)
  - Bladder operation [Unknown]
  - Feeling abnormal [Unknown]
